FAERS Safety Report 14545480 (Version 1)
Quarter: 2018Q1

REPORT INFORMATION
  Report Type: Spontaneous
  Country: RU (occurrence: RU)
  Receive Date: 20180219
  Receipt Date: 20180219
  Transmission Date: 20180509
  Serious: Yes (Hospitalization)
  Sender: FDA-Public Use
  Company Number: RU-ASTRAZENECA-2018SE18735

PATIENT
  Age: 66 Year
  Sex: Male
  Weight: 101 kg

DRUGS (5)
  1. BISOPROLOL [Concomitant]
     Active Substance: BISOPROLOL
  2. FORXIGA [Suspect]
     Active Substance: DAPAGLIFLOZIN
     Indication: TYPE 2 DIABETES MELLITUS
     Route: 048
     Dates: start: 201703
  3. ROSUVASTATIN. [Concomitant]
     Active Substance: ROSUVASTATIN
  4. SPIRONOLACTONE. [Concomitant]
     Active Substance: SPIRONOLACTONE
  5. RAMIPRIL. [Concomitant]
     Active Substance: RAMIPRIL

REACTIONS (2)
  - Hyperkeratosis [Not Recovered/Not Resolved]
  - Cardiovascular disorder [Unknown]

NARRATIVE: CASE EVENT DATE: 201712
